FAERS Safety Report 9936867 (Version 1)
Quarter: 2014Q1

REPORT INFORMATION
  Report Type: Spontaneous
  Country: US (occurrence: None)
  Receive Date: 20140115
  Receipt Date: 20140115
  Transmission Date: 20141002
  Serious: Yes (Other)
  Sender: FDA-Public Use
  Company Number: 2013US002732

PATIENT
  Age: 77 Year
  Sex: Female

DRUGS (4)
  1. ICLUSIG (PONATINIB) TABLET, 45MG [Suspect]
     Indication: LEUKAEMIA
     Route: 048
     Dates: start: 20130802, end: 2013
  2. OMEPRAZOLE (OMEPRAZOLE) [Concomitant]
  3. AMLODIPINE (AMLODIPINE) [Concomitant]
  4. COLESTID (COLESTIPOL HYDROCHLORIDE) [Concomitant]

REACTIONS (2)
  - Blood pressure systolic increased [None]
  - Off label use [None]
